FAERS Safety Report 20423946 (Version 1)
Quarter: 2022Q1

REPORT INFORMATION
  Report Type: Spontaneous
  Country: JP (occurrence: JP)
  Receive Date: 20220203
  Receipt Date: 20220203
  Transmission Date: 20220423
  Serious: Yes (Other)
  Sender: FDA-Public Use
  Company Number: JP-TAKEDA-2021TJP115895

PATIENT
  Age: 64 Year
  Sex: Male
  Weight: 55.9 kg

DRUGS (12)
  1. CABOMETYX [Suspect]
     Active Substance: CABOZANTINIB S-MALATE
     Indication: Hepatocellular carcinoma
     Dosage: 40 MG, QD
     Route: 048
     Dates: start: 20210928, end: 20211019
  2. CABOMETYX [Suspect]
     Active Substance: CABOZANTINIB S-MALATE
     Dosage: 40 MG, QOD
     Route: 048
     Dates: start: 20211026
  3. AMINO ACIDS, SOURCE UNSPECIFIED [Concomitant]
     Active Substance: AMINO ACIDS, SOURCE UNSPECIFIED
     Indication: Hypoalbuminaemia
     Dosage: 4.15 G, TID
     Route: 048
     Dates: start: 20200115
  4. NEXIUM [Concomitant]
     Active Substance: ESOMEPRAZOLE MAGNESIUM
     Indication: Gastrooesophageal reflux disease
     Dosage: 10 MG, QD
     Route: 048
     Dates: start: 20200722
  5. TRAMADOL [Concomitant]
     Active Substance: TRAMADOL
     Indication: Cancer pain
     Dosage: 50 MG, QID
     Route: 048
     Dates: start: 20210425
  6. CALONAL [Concomitant]
     Active Substance: ACETAMINOPHEN
     Indication: Cancer pain
     Dosage: 1000 MG, QID
     Route: 048
     Dates: start: 20200722
  7. WARFARIN [Concomitant]
     Active Substance: WARFARIN
     Indication: Thrombosis prophylaxis
     Dosage: 0.25 MG, QD
     Route: 048
     Dates: start: 20160909
  8. ALLEGRA [Concomitant]
     Active Substance: FEXOFENADINE HYDROCHLORIDE
     Indication: Pruritus
     Dosage: 60 MG, QD
     Route: 048
     Dates: start: 20200916
  9. LASIX [Concomitant]
     Active Substance: FUROSEMIDE
     Indication: Ascites
     Dosage: 20 MG, QD
     Route: 048
     Dates: start: 20210310
  10. SAMSCA [Concomitant]
     Active Substance: TOLVAPTAN
     Indication: Ascites
     Dosage: 7.5 MG, QD
     Route: 048
     Dates: start: 20210421
  11. URSO [Concomitant]
     Active Substance: URSODIOL
     Indication: Primary biliary cholangitis
     Dosage: 300 MG, TID
     Route: 048
     Dates: start: 20180130
  12. HERBALS [Concomitant]
     Active Substance: HERBALS
     Indication: Malaise
     Dosage: UNK UNK, TID
     Route: 048
     Dates: start: 20210707

REACTIONS (1)
  - Thrombocytopenia [Recovered/Resolved]

NARRATIVE: CASE EVENT DATE: 20211019
